FAERS Safety Report 12895222 (Version 3)
Quarter: 2016Q4

REPORT INFORMATION
  Report Type: Spontaneous
  Country: US (occurrence: US)
  Receive Date: 20161029
  Receipt Date: 20161130
  Transmission Date: 20170207
  Serious: No
  Sender: FDA-Public Use
  Company Number: US-ASTRAZENECA-2016SF07675

PATIENT
  Sex: Female
  Weight: 56.7 kg

DRUGS (5)
  1. HIGH BLOOD PRESSURE MEDICATION [Concomitant]
     Active Substance: UNSPECIFIED INGREDIENT
  2. SEROQUEL [Suspect]
     Active Substance: QUETIAPINE FUMARATE
     Dosage: GENERIC25.0MG UNKNOWN
     Route: 048
     Dates: start: 20151222
  3. GLUCOSE MEDICATION [Concomitant]
  4. SEROQUEL [Suspect]
     Active Substance: QUETIAPINE FUMARATE
     Dosage: GENERIC12.5MG UNKNOWN
     Route: 048
     Dates: start: 20151223
  5. DIURETIC MEDICATION [Concomitant]

REACTIONS (10)
  - Dysphonia [Unknown]
  - Lethargy [Unknown]
  - Mental status changes [Unknown]
  - Urinary tract infection [Unknown]
  - Skin discolouration [Unknown]
  - Drug dose omission [Unknown]
  - Hypophagia [Unknown]
  - Gait disturbance [Unknown]
  - Cognitive disorder [Unknown]
  - Weight decreased [Unknown]
